FAERS Safety Report 9252066 (Version 4)
Quarter: 2013Q3

REPORT INFORMATION
  Report Type: Spontaneous
  Country: US (occurrence: US)
  Receive Date: 20130424
  Receipt Date: 20130916
  Transmission Date: 20140515
  Serious: Yes (Hospitalization, Disabling, Other)
  Sender: FDA-Public Use
  Company Number: US-009507513-1304USA014022

PATIENT
  Sex: Female
  Weight: 66 kg

DRUGS (2)
  1. NUVARING [Suspect]
     Indication: CONTRACEPTION
     Dosage: UNK
     Route: 067
     Dates: start: 20101123, end: 20101220
  2. NUVARING [Suspect]
     Dosage: UNK
     Route: 067
     Dates: start: 20110209, end: 20110502

REACTIONS (14)
  - Confusional state [Unknown]
  - Cerebral infarction [Recovering/Resolving]
  - Syncope [Unknown]
  - Deep vein thrombosis [Recovering/Resolving]
  - Mood altered [Unknown]
  - Adverse drug reaction [Unknown]
  - Iron deficiency anaemia [Recovered/Resolved]
  - Menorrhagia [Not Recovered/Not Resolved]
  - Petit mal epilepsy [Unknown]
  - Anxiety disorder [Unknown]
  - Hypotension [Unknown]
  - Transient ischaemic attack [Unknown]
  - Depression [Unknown]
  - Inappropriate schedule of drug administration [Unknown]
